FAERS Safety Report 7116217-1 (Version None)
Quarter: 2010Q4

REPORT INFORMATION
  Report Type: 
  Country: None (occurrence: None)
  Receive Date: 20101122
  Receipt Date: 20101112
  Transmission Date: 20110411
  Serious: Yes (Hospitalization)
  Sender: FDA-Public Use
  Company Number: US-ASTRAZENECA-2010SE54219

PATIENT
  Age: 33 Year
  Sex: Female

DRUGS (3)
  1. SEROQUEL [Suspect]
     Route: 048
  2. TRILEPTAL [Concomitant]
     Dosage: FOUR TIMES A DAY
  3. VALIUM [Concomitant]
     Dosage: THREE TIMES A DAY

REACTIONS (5)
  - BLOOD PRESSURE ABNORMAL [None]
  - DIZZINESS [None]
  - LETHARGY [None]
  - SLUGGISHNESS [None]
  - SOMNOLENCE [None]
